FAERS Safety Report 7937404-6 (Version None)
Quarter: 2011Q4

REPORT INFORMATION
  Report Type: 
  Country: None (occurrence: None)
  Receive Date: 20111123
  Receipt Date: 20111116
  Transmission Date: 20120403
  Serious: Yes (Other)
  Sender: FDA-Public Use
  Company Number: BR-JNJFOC-20110809549

PATIENT
  Age: 56 Year
  Sex: Female

DRUGS (6)
  1. REMICADE [Suspect]
     Indication: PSORIATIC ARTHROPATHY
     Dosage: DOSE WAS 257MG
     Route: 042
     Dates: start: 20110214, end: 20110427
  2. REMICADE [Suspect]
     Dosage: DOSE WAS 257MG
     Route: 042
     Dates: start: 20101104, end: 20101118
  3. REMICADE [Suspect]
     Dosage: DOSE WAS 257MG
     Route: 042
     Dates: start: 20110214, end: 20110427
  4. REMICADE [Suspect]
     Indication: PSORIASIS
     Dosage: DOSE WAS 257MG
     Route: 042
     Dates: start: 20101220
  5. REMICADE [Suspect]
     Dosage: DOSE WAS 257MG
     Route: 042
     Dates: start: 20101104, end: 20101118
  6. REMICADE [Suspect]
     Dosage: DOSE WAS 257MG
     Route: 042
     Dates: start: 20101220

REACTIONS (1)
  - GALACTOSTASIS [None]
